FAERS Safety Report 8586653-5 (Version None)
Quarter: 2012Q3

REPORT INFORMATION
  Report Type: 
  Country: None (occurrence: None)
  Receive Date: 20120810
  Receipt Date: 20120802
  Transmission Date: 20120928
  Serious: Yes (Other)
  Sender: FDA-Public Use
  Company Number: FR-JNJFOC-20120313043

PATIENT
  Age: 41 Year
  Sex: Male

DRUGS (14)
  1. REMICADE [Suspect]
     Route: 042
     Dates: start: 20110422
  2. PREDNISONE TAB [Concomitant]
     Route: 065
  3. REMICADE [Suspect]
     Route: 042
     Dates: start: 20110719
  4. POTASSIUM CHLORIDE [Concomitant]
     Route: 065
  5. REMICADE [Suspect]
     Route: 042
     Dates: start: 20110526
  6. REMICADE [Suspect]
     Route: 042
     Dates: start: 20110912
  7. REMICADE [Suspect]
     Dosage: 7TH INFUSION
     Route: 042
     Dates: start: 20120102, end: 20120102
  8. FOLIC ACID [Concomitant]
     Route: 065
  9. ACETAMINOPHEN [Concomitant]
     Route: 065
  10. REMICADE [Suspect]
     Indication: RHEUMATOID ARTHRITIS
     Route: 042
     Dates: start: 20110408
  11. TRAMADOL HCL [Concomitant]
     Route: 065
  12. METHOTREXATE SODIUM [Concomitant]
     Route: 065
  13. NEXIUM [Concomitant]
     Route: 065
  14. ACTONEL [Concomitant]
     Route: 065

REACTIONS (4)
  - HEADACHE [None]
  - NAUSEA [None]
  - PARADOXICAL DRUG REACTION [None]
  - PYREXIA [None]
